FAERS Safety Report 9870933 (Version 1)
Quarter: 2014Q1

REPORT INFORMATION
  Report Type: Spontaneous
  Country: US (occurrence: None)
  Receive Date: 20140204
  Receipt Date: 20140204
  Transmission Date: 20141002
  Serious: Yes (Other)
  Sender: FDA-Public Use
  Company Number: None

PATIENT
  Age: 61 Year
  Sex: Female

DRUGS (1)
  1. BARACLUDE [Suspect]
     Route: 048
     Dates: start: 20120328

REACTIONS (2)
  - Swelling face [None]
  - Hypersensitivity [None]
